FAERS Safety Report 13530674 (Version 1)
Quarter: 2017Q2

REPORT INFORMATION
  Report Type: Other
  Country: TR (occurrence: TR)
  Receive Date: 20170510
  Receipt Date: 20170510
  Transmission Date: 20170830
  Serious: Yes (Other)
  Sender: FDA-Public Use
  Company Number: TR-DEXPHARM-20170604

PATIENT
  Age: 49 Year
  Sex: Female

DRUGS (1)
  1. DICLOFENAC AND THIOCOLCHICOSIDE INJECTION [Suspect]
     Active Substance: DICLOFENAC SODIUM\THIOCOLCHICOSIDE
     Indication: BACK PAIN
     Route: 030

REACTIONS (1)
  - Embolia cutis medicamentosa [Recovered/Resolved with Sequelae]
